FAERS Safety Report 18448771 (Version 1)
Quarter: 2020Q4

REPORT INFORMATION
  Report Type: Spontaneous
  Country: US (occurrence: US)
  Receive Date: 20201101
  Receipt Date: 20201101
  Transmission Date: 20210114
  Serious: Yes (Other)
  Sender: FDA-Public Use
  Company Number: US-NAPPMUNDI-USA-2020-0154985

PATIENT

DRUGS (3)
  1. OXYCODONE HYDROCHLORIDE (SIMILAR TO NDA 22-272) [Suspect]
     Active Substance: OXYCODONE HYDROCHLORIDE
     Indication: PRODUCT USED FOR UNKNOWN INDICATION
     Dosage: UNKNOWN
     Route: 048
  2. OXYCONTIN [Suspect]
     Active Substance: OXYCODONE HYDROCHLORIDE
     Indication: FIBROMYALGIA
     Dosage: 80 MG, UNK
     Route: 048
  3. OXYCONTIN [Suspect]
     Active Substance: OXYCODONE HYDROCHLORIDE
     Dosage: 320 MG, DAILY
     Route: 048

REACTIONS (9)
  - Drug dependence [Unknown]
  - Sudden onset of sleep [Unknown]
  - Hyperaesthesia [Unknown]
  - Vomiting [Unknown]
  - Pain [Unknown]
  - Impaired work ability [Unknown]
  - Drug tolerance [Unknown]
  - Withdrawal syndrome [Unknown]
  - Prescription drug used without a prescription [Unknown]
